FAERS Safety Report 11506705 (Version 1)
Quarter: 2015Q3

REPORT INFORMATION
  Report Type: Spontaneous
  Country: US (occurrence: None)
  Receive Date: 20150914
  Receipt Date: 20150914
  Transmission Date: 20151125
  Serious: Yes (Hospitalization)
  Sender: FDA-Public Use
  Company Number: None

PATIENT
  Age: 52 Year
  Sex: Male

DRUGS (8)
  1. ZOCOR [Concomitant]
     Active Substance: SIMVASTATIN
  2. ATENOLOL. [Concomitant]
     Active Substance: ATENOLOL
  3. HYDRALAZINE [Concomitant]
     Active Substance: HYDRALAZINE HYDROCHLORIDE
  4. REVATIO [Concomitant]
     Active Substance: SILDENAFIL CITRATE
  5. RENVELA [Concomitant]
     Active Substance: SEVELAMER CARBONATE
  6. LOSARTAN. [Concomitant]
     Active Substance: LOSARTAN
  7. DIPHENOXYLATE-ATROPINE [Concomitant]
  8. TRACLEER [Suspect]
     Active Substance: BOSENTAN
     Indication: PULMONARY ARTERIAL HYPERTENSION
     Route: 048
     Dates: start: 20141223, end: 201506

REACTIONS (1)
  - Pyrexia [None]

NARRATIVE: CASE EVENT DATE: 20150827
